FAERS Safety Report 12635535 (Version 1)
Quarter: 2016Q3

REPORT INFORMATION
  Report Type: Spontaneous
  Country: US (occurrence: US)
  Receive Date: 20160809
  Receipt Date: 20160809
  Transmission Date: 20161109
  Serious: Yes (Hospitalization)
  Sender: FDA-Public Use
  Company Number: US-SEBELA IRELAND LIMITED-2016SEB00300

PATIENT
  Age: 51 Year
  Sex: Female
  Weight: 60.32 kg

DRUGS (4)
  1. BUDESONIDE. [Concomitant]
     Active Substance: BUDESONIDE
     Dosage: 3 MG 1 TAB 1X/DAY
     Dates: start: 2016, end: 20160609
  2. BUDESONIDE. [Concomitant]
     Active Substance: BUDESONIDE
     Dosage: 3MG  2TABS 1X/DAY
     Dates: start: 2916, end: 20160609
  3. BUDESONIDE. [Concomitant]
     Active Substance: BUDESONIDE
     Dosage: 3MG  3TABS 1X/DAY
     Dates: start: 2016, end: 20160609
  4. IMURAN [Suspect]
     Active Substance: AZATHIOPRINE
     Indication: CROHN^S DISEASE
     Dosage: 50 MG, 1X/DAY
     Route: 048
     Dates: start: 20160518, end: 20160605

REACTIONS (2)
  - Insomnia [Recovered/Resolved]
  - Pancreatitis acute [Recovered/Resolved]

NARRATIVE: CASE EVENT DATE: 201605
